FAERS Safety Report 4334542-4 (Version None)
Quarter: 2004Q2

REPORT INFORMATION
  Report Type: 
  Country: None (occurrence: None)
  Receive Date: 20040407
  Receipt Date: 20040326
  Transmission Date: 20050107
  Serious: Yes (Hospitalization)
  Sender: FDA-Public Use
  Company Number: CH-GLAXOSMITHKLINE-B0328219A

PATIENT
  Age: 43 Year
  Sex: Male

DRUGS (3)
  1. AUGMENTIN [Suspect]
     Indication: PAIN
     Dosage: 625MG THREE TIMES PER DAY
     Route: 048
     Dates: start: 20040324
  2. PONSTAN [Concomitant]
     Indication: PAIN
     Dosage: 500MG PER DAY
     Route: 048
     Dates: start: 20040320
  3. ACETAMINOPHEN [Concomitant]
     Indication: PAIN
     Dosage: 500MG FOUR TIMES PER DAY
     Route: 048
     Dates: start: 20040320

REACTIONS (5)
  - DIZZINESS [None]
  - HEADACHE [None]
  - HYPERTENSION [None]
  - PALLOR [None]
  - SOMNOLENCE [None]
